FAERS Safety Report 25976846 (Version 1)
Quarter: 2025Q4

REPORT INFORMATION
  Report Type: Spontaneous
  Country: US (occurrence: US)
  Receive Date: 20251029
  Receipt Date: 20251029
  Transmission Date: 20260118
  Serious: No
  Sender: ETON PHARMACEUTICALS, INC
  Company Number: US-IPSEN Group, Research and Development-2024-22806

PATIENT

DRUGS (3)
  1. INCRELEX [Suspect]
     Active Substance: MECASERMIN
     Indication: Primary insulin like growth factor-1 deficiency
     Dosage: STRENGTH: 40 MG/ 4 ML, BID
     Route: 058
  2. INCRELEX [Suspect]
     Active Substance: MECASERMIN
     Dosage: STRENGTH: 40 MG/ 4 ML, BID
     Route: 058
  3. INCRELEX [Suspect]
     Active Substance: MECASERMIN
     Dosage: STRENGTH: 40 MG/ 4 ML, BID
     Route: 058
     Dates: start: 202501

REACTIONS (2)
  - Product dose omission issue [Unknown]
  - Injection site pain [Unknown]
